FAERS Safety Report 7878691-2 (Version None)
Quarter: 2011Q4

REPORT INFORMATION
  Report Type: 
  Country: None (occurrence: None)
  Receive Date: 20111028
  Receipt Date: 20111013
  Transmission Date: 20120403
  Serious: No
  Sender: FDA-Public Use
  Company Number: DSJ-2011-15555

PATIENT
  Age: 79 Year
  Sex: Male

DRUGS (5)
  1. CEVIMELINE HYDROCHLORIDE [Suspect]
     Indication: DRY MOUTH
     Dosage: 90 MG (30 MG, 3 IN 1 D), PER ORAL
     Route: 048
     Dates: start: 20110725, end: 20110726
  2. HALCION [Concomitant]
  3. HARNAL (TAMSULOSIN HYDROCHLORIDE) (TAMSULOSIN HYDROCHLORIDE) [Concomitant]
  4. PLAVIX [Concomitant]
  5. PROTECADIN (LAFUTIDINE) (LAFUTIDINE) [Concomitant]

REACTIONS (1)
  - PROSTATIC PAIN [None]
